FAERS Safety Report 23263726 (Version 3)
Quarter: 2024Q1

REPORT INFORMATION
  Report Type: Spontaneous
  Country: US (occurrence: US)
  Receive Date: 20231205
  Receipt Date: 20240329
  Transmission Date: 20240409
  Serious: No
  Sender: FDA-Public Use
  Company Number: US-BRISTOL-MYERS SQUIBB COMPANY-2023-174516

PATIENT
  Age: 67 Year
  Sex: Male

DRUGS (2)
  1. REVLIMID [Suspect]
     Active Substance: LENALIDOMIDE
     Indication: Plasma cell myeloma
     Dosage: FREQ: 5MG DAILY MONDAY THROUGH FRIDAY FOR 2 WEEKS, THEN
     Route: 048
  2. REVLIMID [Suspect]
     Active Substance: LENALIDOMIDE
     Indication: Iron deficiency anaemia
     Dosage: FREQUNECY: QD MONDAY THRU FRIDAY ONLY FOR 2 WKS ON 7 DAYS OF
     Route: 048

REACTIONS (4)
  - Off label use [Unknown]
  - Memory impairment [Unknown]
  - Insurance issue [Unknown]
  - Therapy interrupted [Unknown]
